FAERS Safety Report 5483723-5 (Version None)
Quarter: 2007Q4

REPORT INFORMATION
  Report Type: 
  Country: None (occurrence: None)
  Receive Date: 20071012
  Receipt Date: 20071011
  Transmission Date: 20080405
  Serious: Yes (Other)
  Sender: FDA-Public Use
  Company Number: A0687142A

PATIENT
  Age: 46 Year
  Sex: Female

DRUGS (4)
  1. ALLI [Suspect]
     Route: 048
     Dates: start: 20070924
  2. ZOCOR [Concomitant]
  3. LOTREL [Concomitant]
  4. MULTI-VITAMIN [Concomitant]

REACTIONS (4)
  - ANAL DISCOMFORT [None]
  - PRURITUS ANI [None]
  - RECTAL DISCHARGE [None]
  - RECTAL HAEMORRHAGE [None]
